FAERS Safety Report 6936310-3 (Version None)
Quarter: 2010Q3

REPORT INFORMATION
  Report Type: 
  Country: None (occurrence: None)
  Receive Date: 20100823
  Receipt Date: 20100810
  Transmission Date: 20110219
  Serious: Yes (Hospitalization)
  Sender: FDA-Public Use
  Company Number: GB-ELI_LILLY_AND_COMPANY-GB201008003625

PATIENT
  Sex: Male
  Weight: 66.6 kg

DRUGS (8)
  1. NECITUMUMAB (11F8) (LY3012211) [Suspect]
     Indication: NON-SMALL CELL LUNG CANCER
     Dosage: 800 MG, OTHER
     Route: 042
     Dates: start: 20100714
  2. GEMCITABINE HCL [Suspect]
     Indication: NON-SMALL CELL LUNG CANCER
     Dosage: 2242 MG, OTHER
     Route: 042
     Dates: start: 20100714
  3. CISPLATIN [Suspect]
     Indication: NON-SMALL CELL LUNG CANCER
     Dosage: 134 MG, OTHER
     Route: 042
     Dates: start: 20100714
  4. ANADIN [Concomitant]
     Dates: start: 20100521
  5. LANSOPRAZOLE [Concomitant]
     Dates: start: 20100731
  6. ONDANSETRON [Concomitant]
     Dosage: 8 MG, UNK
     Dates: start: 20100714
  7. DEXAMETHASONE [Concomitant]
     Dosage: 2 MG, UNK
     Dates: start: 20100731
  8. AQUEOUS CREAM [Concomitant]
     Dosage: UNK, AS NEEDED
     Route: 061
     Dates: start: 20100724

REACTIONS (1)
  - DEHYDRATION [None]
